FAERS Safety Report 23360800 (Version 1)
Quarter: 2024Q1

REPORT INFORMATION
  Report Type: Spontaneous
  Country: US (occurrence: None)
  Receive Date: 20240103
  Receipt Date: 20240103
  Transmission Date: 20240409
  Serious: No
  Sender: FDA-Public Use
  Company Number: 2023A291283

PATIENT
  Sex: Female

DRUGS (1)
  1. FARXIGA [Suspect]
     Active Substance: DAPAGLIFLOZIN PROPANEDIOL
     Route: 048
     Dates: end: 20231220

REACTIONS (9)
  - Erythema [Unknown]
  - Feeling abnormal [Unknown]
  - Rash macular [Unknown]
  - Rash [Unknown]
  - Pigmentation disorder [Unknown]
  - Blood glucose abnormal [Unknown]
  - Swelling face [Unknown]
  - Intentional product misuse [Unknown]
  - Drug ineffective [Unknown]
